FAERS Safety Report 8683711 (Version 2)
Quarter: 2013Q1

REPORT INFORMATION
  Report Type: Spontaneous
  Country: US (occurrence: US)
  Receive Date: 20120726
  Receipt Date: 20130211
  Transmission Date: 20140127
  Serious: Yes (Hospitalization)
  Sender: FDA-Public Use
  Company Number: PHEH2012US014460

PATIENT
  Age: 35 Year
  Sex: Male

DRUGS (1)
  1. TOBI [Suspect]
     Indication: CYSTIC FIBROSIS
     Dosage: 5 ML, BID
     Dates: start: 20121011

REACTIONS (2)
  - Pneumonia [Unknown]
  - Respiratory disorder [Unknown]
